FAERS Safety Report 25908555 (Version 1)
Quarter: 2025Q4

REPORT INFORMATION
  Report Type: Spontaneous
  Country: EU (occurrence: EU)
  Receive Date: 20251010
  Receipt Date: 20251010
  Transmission Date: 20260118
  Serious: Yes (Other)
  Sender: MERCK SHARP & DOHME LLC
  Company Number: EU-Eisai-EC-2025-197372

PATIENT
  Sex: Female

DRUGS (2)
  1. PEMBROLIZUMAB [Suspect]
     Active Substance: PEMBROLIZUMAB
     Indication: Endometrial cancer
     Route: 042
  2. LENVATINIB [Suspect]
     Active Substance: LENVATINIB
     Indication: Endometrial cancer
     Dosage: FREQUENCY UNKNOWN
     Route: 048

REACTIONS (1)
  - Renal failure [Unknown]
